FAERS Safety Report 9329626 (Version 1)
Quarter: 2013Q2

REPORT INFORMATION
  Report Type: Spontaneous
  Country: US (occurrence: US)
  Receive Date: 20130604
  Receipt Date: 20130604
  Transmission Date: 20140414
  Serious: Yes (Other)
  Sender: FDA-Public Use
  Company Number: CHPA2013US009112

PATIENT
  Age: 73 Year
  Sex: Female

DRUGS (1)
  1. VOLTAREN GEL [Suspect]
     Indication: NEURALGIA
     Dosage: A LITTLE BIT, UNK

REACTIONS (5)
  - Application site pain [Recovered/Resolved]
  - Laceration [Unknown]
  - Off label use [Unknown]
  - Wrong technique in drug usage process [Unknown]
  - Drug administered at inappropriate site [Unknown]
